FAERS Safety Report 10005224 (Version 1)
Quarter: 2014Q1

REPORT INFORMATION
  Report Type: Spontaneous
  Country: US (occurrence: US)
  Receive Date: 20140312
  Receipt Date: 20140312
  Transmission Date: 20141002
  Serious: Yes (Hospitalization)
  Sender: FDA-Public Use
  Company Number: US-SA-2014SA025938

PATIENT
  Age: 60 Year
  Sex: Female

DRUGS (26)
  1. ARAVA [Suspect]
     Indication: RHEUMATOID ARTHRITIS
     Route: 048
     Dates: start: 20130214, end: 20130707
  2. TOCILIZUMAB [Suspect]
     Indication: RHEUMATOID ARTHRITIS
     Route: 042
     Dates: start: 20121220
  3. AMITRIPTYLINE [Concomitant]
     Indication: INSOMNIA
     Route: 048
     Dates: start: 2005
  4. METHOTREXATE [Concomitant]
     Indication: RHEUMATOID ARTHRITIS
     Route: 058
     Dates: start: 20121130, end: 20130214
  5. METHOTREXATE [Concomitant]
     Indication: RHEUMATOID ARTHRITIS
     Route: 030
     Dates: start: 20130708, end: 20130731
  6. BENAZEPRIL [Concomitant]
     Route: 048
     Dates: start: 1992
  7. AMLODIPINE [Concomitant]
     Indication: HYPERTENSION
     Route: 048
     Dates: start: 1992, end: 20130803
  8. AMLODIPINE [Concomitant]
     Indication: HYPERTENSION
     Route: 048
     Dates: start: 20130915
  9. HYDROCODONE HYDROCHLORIDE [Concomitant]
     Indication: RHEUMATOID ARTHRITIS
     Route: 048
     Dates: start: 201206
  10. FOLIC ACID [Concomitant]
     Route: 048
     Dates: start: 20121130, end: 20130731
  11. IBUPROFEN [Concomitant]
     Indication: HEADACHE
     Route: 048
     Dates: start: 1985
  12. PREDNISONE [Concomitant]
     Indication: RHEUMATOID ARTHRITIS
     Route: 048
     Dates: start: 201210, end: 201301
  13. PREDNISONE [Concomitant]
     Indication: CHRONIC OBSTRUCTIVE PULMONARY DISEASE
     Route: 048
     Dates: start: 201210, end: 201301
  14. PREDNISONE [Concomitant]
     Indication: RHEUMATOID ARTHRITIS
     Route: 048
     Dates: start: 20130801, end: 20130806
  15. PREDNISONE [Concomitant]
     Indication: CHRONIC OBSTRUCTIVE PULMONARY DISEASE
     Route: 048
     Dates: start: 20130801, end: 20130806
  16. PREDNISONE [Concomitant]
     Indication: RHEUMATOID ARTHRITIS
     Route: 048
     Dates: start: 20130807, end: 20130811
  17. PREDNISONE [Concomitant]
     Indication: CHRONIC OBSTRUCTIVE PULMONARY DISEASE
     Route: 048
     Dates: start: 20130807, end: 20130811
  18. PREDNISONE [Concomitant]
     Indication: RHEUMATOID ARTHRITIS
     Route: 048
     Dates: start: 20130812, end: 20130816
  19. PREDNISONE [Concomitant]
     Indication: CHRONIC OBSTRUCTIVE PULMONARY DISEASE
     Route: 048
     Dates: start: 20130812, end: 20130816
  20. VOLTAREN [Concomitant]
     Indication: RHEUMATOID ARTHRITIS
     Route: 061
     Dates: start: 20130122
  21. ZOFRAN [Concomitant]
     Route: 048
     Dates: start: 20130708, end: 20130731
  22. ADVAIR [Concomitant]
     Indication: ASTHMA
     Route: 055
     Dates: start: 2005, end: 20130730
  23. ADVAIR [Concomitant]
     Indication: ASTHMA
     Route: 055
     Dates: start: 20130731
  24. SINGULAIR [Concomitant]
     Indication: ASTHMA
     Route: 048
     Dates: start: 20130328, end: 20130730
  25. SINGULAIR [Concomitant]
     Indication: ASTHMA
     Route: 048
     Dates: start: 20130731
  26. VITAMIN D [Concomitant]

REACTIONS (2)
  - Chronic obstructive pulmonary disease [Unknown]
  - Dyspnoea [Recovered/Resolved]
